FAERS Safety Report 4456809-1 (Version None)
Quarter: 2004Q3

REPORT INFORMATION
  Report Type: 
  Country: None (occurrence: None)
  Receive Date: 20040921
  Receipt Date: 20040913
  Transmission Date: 20050211
  Serious: Yes (Death, Hospitalization, Other)
  Sender: FDA-Public Use
  Company Number: US-JNJFOC-20040903578

PATIENT
  Age: 45 Year
  Sex: Female

DRUGS (5)
  1. CYCLOBENZAPRINE HCL [Suspect]
     Dosage: ORAL
     Route: 048
  2. ALPRAZOLAM [Suspect]
     Dosage: ORAL
  3. METHADONE HCL [Suspect]
     Dosage: ORAL
     Route: 048
  4. HYDROCODONE (HYDROCODONE) [Suspect]
     Dosage: ORAL
  5. DIHYDROCODEINE (DIHYDROCODEINE) [Suspect]
     Dosage: ORAL
     Route: 048

REACTIONS (36)
  - ABSCESS [None]
  - ACIDOSIS [None]
  - AGITATION [None]
  - BLISTER [None]
  - BLOOD BICARBONATE DECREASED [None]
  - BLOOD CREATININE INCREASED [None]
  - BLOOD PH INCREASED [None]
  - BLOOD POTASSIUM DECREASED [None]
  - BLOOD UREA INCREASED [None]
  - BRONCHOPNEUMONIA [None]
  - CARDIO-RESPIRATORY ARREST [None]
  - CONFUSIONAL STATE [None]
  - DEHYDRATION [None]
  - DRUG SCREEN POSITIVE [None]
  - DRUG TOXICITY [None]
  - DRY SKIN [None]
  - ELECTROCARDIOGRAM QT CORRECTED INTERVAL PROLONGED [None]
  - HEART RATE INCREASED [None]
  - HEPATIC STEATOSIS [None]
  - HEPATITIS [None]
  - HYPERTHERMIA [None]
  - HYPOXIC ENCEPHALOPATHY [None]
  - IMMOBILE [None]
  - INTERNATIONAL NORMALISED RATIO INCREASED [None]
  - MULTI-ORGAN DISORDER [None]
  - MYDRIASIS [None]
  - OLIGURIA [None]
  - PCO2 DECREASED [None]
  - PLATELET COUNT DECREASED [None]
  - PROTHROMBIN TIME PROLONGED [None]
  - RENAL INFARCT [None]
  - RESPIRATORY RATE INCREASED [None]
  - SINUS TACHYCARDIA [None]
  - SPLEEN DISORDER [None]
  - STAPHYLOCOCCAL SEPSIS [None]
  - WHITE BLOOD CELL COUNT INCREASED [None]
